FAERS Safety Report 4741750-7 (Version None)
Quarter: 2005Q3

REPORT INFORMATION
  Report Type: 
  Country: None (occurrence: None)
  Receive Date: 20050810
  Receipt Date: 20050310
  Transmission Date: 20060218
  Serious: Yes (Hospitalization, Other)
  Sender: FDA-Public Use
  Company Number: US-MERCK-0503USA01896

PATIENT
  Age: 50 Year
  Sex: Male
  Weight: 100 kg

DRUGS (11)
  1. VIOXX [Suspect]
     Indication: ARTHRITIS
     Route: 048
     Dates: start: 20001001, end: 20040101
  2. BENICAR [Concomitant]
     Route: 065
  3. COREG [Concomitant]
     Route: 065
  4. LOFIBRA [Concomitant]
     Route: 065
  5. PLAVIX [Concomitant]
     Route: 065
  6. PLETAL [Concomitant]
     Route: 065
  7. PROTONIX [Concomitant]
     Route: 065
  8. MOBIC [Concomitant]
     Route: 065
  9. WELLBUTRIN [Concomitant]
     Route: 065
  10. CARDIZEM [Concomitant]
     Route: 048
     Dates: start: 20001125
  11. ASPIRIN [Concomitant]
     Indication: PAIN
     Route: 048

REACTIONS (24)
  - ABDOMINAL PAIN UPPER [None]
  - ANXIETY [None]
  - BLOOD PRESSURE DECREASED [None]
  - CHEST DISCOMFORT [None]
  - DEPRESSION [None]
  - DIZZINESS [None]
  - DRUG INEFFECTIVE [None]
  - EMOTIONAL DISTRESS [None]
  - GASTROOESOPHAGEAL REFLUX DISEASE [None]
  - HAEMORRHAGE [None]
  - HAEMORRHOIDS [None]
  - HEADACHE [None]
  - HYPERCHOLESTEROLAEMIA [None]
  - HYPERTENSION [None]
  - INSOMNIA [None]
  - JOINT INJURY [None]
  - MYOCARDIAL INFARCTION [None]
  - REFLUX OESOPHAGITIS [None]
  - RIB FRACTURE [None]
  - SINUSITIS [None]
  - SYNCOPE [None]
  - TRANSIENT ISCHAEMIC ATTACK [None]
  - VENTRICULAR TACHYCARDIA [None]
  - WEIGHT DECREASED [None]
